FAERS Safety Report 12698586 (Version 5)
Quarter: 2017Q3

REPORT INFORMATION
  Report Type: Other
  Country: JP (occurrence: JP)
  Receive Date: 20160830
  Receipt Date: 20170707
  Transmission Date: 20171127
  Serious: Yes (Hospitalization)
  Sender: FDA-Public Use
  Company Number: JP-HIKMA PHARMACEUTICALS CO. LTD-2016JP008096

PATIENT

DRUGS (30)
  1. INFLIXIMAB BS FOR I.V. INFUSION100 MG [NK] [Suspect]
     Active Substance: INFLIXIMAB
     Dosage: 300 MG/BODY
     Route: 042
     Dates: start: 20160528, end: 20160528
  2. MIYA-BM [Concomitant]
     Active Substance: CLOSTRIDIUM BUTYRICUM SPORES STRAIN M-55
     Indication: CROHN^S DISEASE
     Dosage: 6 DF, DAILY
     Dates: start: 20160213, end: 20160528
  3. LANSOPRAZOLE. [Concomitant]
     Active Substance: LANSOPRAZOLE
     Indication: CROHN^S DISEASE
     Dosage: 15 MG, DAILY
     Dates: start: 20160213
  4. RISPERIDONE. [Concomitant]
     Active Substance: RISPERIDONE
     Indication: DEPRESSION
     Dosage: 2 MG, DAILY
  5. BROTIZOLAM [Concomitant]
     Active Substance: BROTIZOLAM
     Indication: SCHIZOPHRENIA
  6. ALPRAZOLAM. [Concomitant]
     Active Substance: ALPRAZOLAM
     Indication: SCHIZOPHRENIA
  7. ROHYPNOL [Concomitant]
     Active Substance: FLUNITRAZEPAM
     Indication: DEPRESSION
     Dosage: 2 MG, DAILY
  8. INFLIXIMAB BS FOR I.V. INFUSION100 MG [NK] [Suspect]
     Active Substance: INFLIXIMAB
     Dosage: 5 MG/KG
     Route: 042
     Dates: start: 20160804, end: 20160804
  9. PENTASA [Concomitant]
     Active Substance: MESALAMINE
     Indication: CROHN^S DISEASE
     Dosage: 2250 MG, DAILY
     Dates: start: 20160213
  10. TRAMCET [Concomitant]
     Active Substance: ACETAMINOPHEN\TRAMADOL
     Indication: CHEST PAIN
     Dosage: 1 DF, DAILY
     Dates: start: 20160213, end: 20160219
  11. ROHYPNOL [Concomitant]
     Active Substance: FLUNITRAZEPAM
     Indication: ANXIETY DISORDER
  12. INFLIXIMAB BS FOR I.V. INFUSION100 MG [NK] [Suspect]
     Active Substance: INFLIXIMAB
     Indication: CROHN^S DISEASE
     Dosage: 200 MG/BODY
     Route: 042
     Dates: start: 20160222, end: 20160222
  13. INFLIXIMAB BS FOR I.V. INFUSION100 MG [NK] [Suspect]
     Active Substance: INFLIXIMAB
     Dosage: 200 MG/BODY
     Route: 042
     Dates: start: 20160307, end: 20160307
  14. INFLIXIMAB BS FOR I.V. INFUSION100 MG [NK] [Suspect]
     Active Substance: INFLIXIMAB
     Dosage: 300 MG/BODY
     Route: 042
     Dates: start: 20160402, end: 20160402
  15. BROTIZOLAM [Concomitant]
     Active Substance: BROTIZOLAM
     Indication: DEPRESSION
     Dosage: 0.25 MG, DAILY
  16. LORAZEPAM. [Concomitant]
     Active Substance: LORAZEPAM
     Indication: ANXIETY DISORDER
  17. FESIN                              /00023550/ [Concomitant]
     Active Substance: IRON SUCROSE
     Indication: ANAEMIA
     Dosage: 40 MG, DAILY
     Dates: start: 20160213
  18. ELENTAL [Concomitant]
     Active Substance: AMINO ACIDS\CARBOHYDRATES\MINERALS\SOYBEAN OIL\VITAMINS
     Indication: CROHN^S DISEASE
     Dosage: 160 G, DAILY
     Dates: start: 20160216
  19. IMURAN [Concomitant]
     Active Substance: AZATHIOPRINE
     Indication: CROHN^S DISEASE
     Dosage: 25 MG, DAILY
     Dates: start: 20160219
  20. INFLIXIMAB BS FOR I.V. INFUSION100 MG [NK] [Suspect]
     Active Substance: INFLIXIMAB
     Dosage: 5 MG/KG, UNK
     Route: 042
  21. INFLIXIMAB BS FOR I.V. INFUSION100 MG [NK] [Suspect]
     Active Substance: INFLIXIMAB
     Dosage: 5 MG/KG, UNK
     Route: 042
     Dates: start: 20161001, end: 20161001
  22. RISPERIDONE. [Concomitant]
     Active Substance: RISPERIDONE
     Indication: SCHIZOPHRENIA
  23. LORAZEPAM. [Concomitant]
     Active Substance: LORAZEPAM
     Indication: SCHIZOPHRENIA
  24. ALPRAZOLAM. [Concomitant]
     Active Substance: ALPRAZOLAM
     Indication: DEPRESSION
     Dosage: 0.4 MG, DAILY
  25. CRAVIT [Concomitant]
     Active Substance: LEVOFLOXACIN
     Indication: CROHN^S DISEASE
     Dosage: 500 MG, DAILY
     Dates: start: 20160215, end: 20160219
  26. ALPRAZOLAM. [Concomitant]
     Active Substance: ALPRAZOLAM
     Indication: ANXIETY DISORDER
  27. RISPERIDONE. [Concomitant]
     Active Substance: RISPERIDONE
     Indication: ANXIETY DISORDER
  28. BROTIZOLAM [Concomitant]
     Active Substance: BROTIZOLAM
     Indication: ANXIETY DISORDER
  29. ROHYPNOL [Concomitant]
     Active Substance: FLUNITRAZEPAM
     Indication: SCHIZOPHRENIA
  30. LORAZEPAM. [Concomitant]
     Active Substance: LORAZEPAM
     Indication: DEPRESSION
     Dosage: 0.5 MG, DAILY

REACTIONS (2)
  - Intestinal stenosis [Recovered/Resolved]
  - Dermatitis psoriasiform [Unknown]

NARRATIVE: CASE EVENT DATE: 20160512
